FAERS Safety Report 9985873 (Version 1)
Quarter: 2014Q1

REPORT INFORMATION
  Report Type: Spontaneous
  Country: US (occurrence: US)
  Receive Date: 20140307
  Receipt Date: 20140307
  Transmission Date: 20141002
  Serious: Yes (Hospitalization)
  Sender: FDA-Public Use
  Company Number: US-ASTRAZENECA-2014SE15167

PATIENT
  Age: 62 Year
  Sex: Female

DRUGS (3)
  1. CRESTOR [Suspect]
     Indication: BLOOD CHOLESTEROL INCREASED
     Route: 048
     Dates: start: 20130303
  2. HYDROCODONE [Concomitant]
     Indication: FIBROMYALGIA
     Dosage: 7.5 OID
     Route: 048
  3. HYDROCODONE [Concomitant]
     Indication: FIBROMYALGIA
     Dosage: 325 OID
     Route: 048
     Dates: start: 20130201

REACTIONS (3)
  - Chest pain [Recovered/Resolved]
  - Cardiac disorder [Unknown]
  - Intentional drug misuse [Unknown]
